FAERS Safety Report 4951810-3 (Version None)
Quarter: 2006Q1

REPORT INFORMATION
  Report Type: 
  Country: None (occurrence: None)
  Receive Date: 20060323
  Receipt Date: 20060315
  Transmission Date: 20060701
  Serious: Yes (Hospitalization)
  Sender: FDA-Public Use
  Company Number: US-ROCHE-440656

PATIENT
  Age: 51 Year
  Sex: Male

DRUGS (3)
  1. PEGASYS [Suspect]
     Indication: DRUG USE FOR UNKNOWN INDICATION
     Route: 065
     Dates: start: 20041230, end: 20050114
  2. COPEGUS [Suspect]
     Indication: DRUG USE FOR UNKNOWN INDICATION
     Route: 048
     Dates: start: 20041230, end: 20050114
  3. LITHIUM [Concomitant]
     Indication: BIPOLAR DISORDER

REACTIONS (7)
  - CHILLS [None]
  - CHOLELITHIASIS [None]
  - DYSPNOEA [None]
  - DYSTONIA [None]
  - HALLUCINATION [None]
  - PAIN [None]
  - PYREXIA [None]
